FAERS Safety Report 10363773 (Version 2)
Quarter: 2015Q1

REPORT INFORMATION
  Report Type: Spontaneous
  Country: FR (occurrence: None)
  Receive Date: 20140801
  Receipt Date: 20150209
  Transmission Date: 20150720
  Serious: Yes (Death, Life-Threatening, Hospitalization)
  Sender: FDA-Public Use
  Company Number: 2014MPI00895

PATIENT
  Age: 56 Year
  Sex: Male

DRUGS (9)
  1. CYCLOPHOSPHAMIDE (CYCLOPHOSPHAMIDE) [Concomitant]
     Active Substance: CYCLOPHOSPHAMIDE
  2. DOXORUBICIN (DOXORUBICIN) [Concomitant]
     Active Substance: DOXORUBICIN
  3. CYTOSINE ARABINOSIDE (CYTOSINE ARABINOSIDE) [Concomitant]
  4. PREDNISONE (PREDNISONE) [Concomitant]
     Active Substance: PREDNISONE
  5. CISPLATINE (CISPLATIN) [Concomitant]
  6. DEXAMETHASONE (DEXAMETHASONE) [Concomitant]
     Active Substance: DEXAMETHASONE
  7. VINCRISTINE (VINCRISTINE) [Concomitant]
     Active Substance: VINCRISTINE
  8. RITUXIMAB (RITUXIMAB) [Concomitant]
     Active Substance: RITUXIMAB
  9. ADCETRIS [Suspect]
     Active Substance: BRENTUXIMAB VEDOTIN
     Indication: NON-HODGKIN^S LYMPHOMA
     Route: 042
     Dates: start: 20140303, end: 20140505

REACTIONS (4)
  - Acute respiratory distress syndrome [None]
  - Immunosuppression [None]
  - Pneumocystis jirovecii pneumonia [None]
  - Lymphopenia [None]

NARRATIVE: CASE EVENT DATE: 201403
